FAERS Safety Report 12771202 (Version 1)
Quarter: 2016Q3

REPORT INFORMATION
  Report Type: Spontaneous
  Country: US (occurrence: US)
  Receive Date: 20160921
  Receipt Date: 20160921
  Transmission Date: 20161109
  Serious: Yes (Other)
  Sender: FDA-Public Use
  Company Number: None

PATIENT
  Age: 20 Year
  Sex: Female
  Weight: 78.75 kg

DRUGS (2)
  1. DEPRESSION MEDICINE [Concomitant]
     Active Substance: UNSPECIFIED INGREDIENT
  2. DEPO-PROVERA [Suspect]
     Active Substance: MEDROXYPROGESTERONE ACETATE
     Indication: CONTRACEPTION
     Dosage: OTHER STRENGTH:;OTHER DOSE:SHOT;OTHER FREQUENCY:EVERY 3 MONTHS;OTHER ROUTE:SHOT

REACTIONS (1)
  - Unevaluable event [None]

NARRATIVE: CASE EVENT DATE: 20160921
